FAERS Safety Report 25840401 (Version 1)
Quarter: 2025Q3

REPORT INFORMATION
  Report Type: Spontaneous
  Country: BR (occurrence: BR)
  Receive Date: 20250924
  Receipt Date: 20250924
  Transmission Date: 20251020
  Serious: No
  Sender: ANI
  Company Number: BR-ANIPHARMA-030697

PATIENT
  Sex: Male

DRUGS (1)
  1. FLUVOXAMINE MALEATE [Suspect]
     Active Substance: FLUVOXAMINE MALEATE
     Indication: Obsessive-compulsive disorder

REACTIONS (3)
  - Depression [Unknown]
  - Insomnia [Unknown]
  - Drug ineffective [Unknown]
